FAERS Safety Report 19841493 (Version 1)
Quarter: 2021Q3

REPORT INFORMATION
  Report Type: Spontaneous
  Country: IT (occurrence: IT)
  Receive Date: 20210915
  Receipt Date: 20210915
  Transmission Date: 20211014
  Serious: Yes (Other)
  Sender: FDA-Public Use
  Company Number: IT-PFIZER INC-202101138863

PATIENT
  Age: 44 Year
  Sex: Female

DRUGS (4)
  1. GEMCITABINE HYDROCHLORIDE. [Suspect]
     Active Substance: GEMCITABINE HYDROCHLORIDE
     Indication: TRIPLE POSITIVE BREAST CANCER
     Dosage: 1000 MG/M2 .D1, D8 EVERY THREE WEEKS (4 UNITS)
     Dates: start: 202004
  2. TRASTUZUMAB. [Suspect]
     Active Substance: TRASTUZUMAB
     Indication: TRIPLE POSITIVE BREAST CANCER
     Dosage: 6 MG/KG EVERY THREE WEEKS (4 UNITS)
     Dates: start: 202004
  3. OXYCODONE [Suspect]
     Active Substance: OXYCODONE
     Indication: PAIN
     Dosage: UNK
     Dates: start: 2020
  4. NALOXONE [Suspect]
     Active Substance: NALOXONE
     Indication: PAIN
     Dosage: UNK
     Dates: start: 2020

REACTIONS (2)
  - Hypertransaminasaemia [Unknown]
  - Hepatotoxicity [Unknown]

NARRATIVE: CASE EVENT DATE: 2020
